FAERS Safety Report 7623030-5 (Version None)
Quarter: 2011Q3

REPORT INFORMATION
  Report Type: 
  Country: None (occurrence: None)
  Receive Date: 20110720
  Receipt Date: 20110712
  Transmission Date: 20111222
  Serious: Yes (Other)
  Sender: FDA-Public Use
  Company Number: CA-ABBOTT-11P-028-0721978-00

PATIENT
  Sex: Female
  Weight: 36 kg

DRUGS (6)
  1. NORVASC [Concomitant]
     Indication: PRODUCT USED FOR UNKNOWN INDICATION
     Dates: start: 20090101
  2. AVAPRO [Concomitant]
     Indication: PRODUCT USED FOR UNKNOWN INDICATION
  3. HYDROCHLOROTHIAZIDE [Concomitant]
     Indication: PRODUCT USED FOR UNKNOWN INDICATION
     Dosage: 12.5MG OD
  4. HYDROCHLORTHIAZIDE [Concomitant]
     Indication: PRODUCT USED FOR UNKNOWN INDICATION
  5. MAVIK [Suspect]
     Indication: ESSENTIAL HYPERTENSION
     Dates: start: 20090727
  6. MAVIK [Suspect]
     Dosage: 1 MG   3 TABS
     Dates: start: 20101022

REACTIONS (3)
  - HYPOTHYROIDISM [None]
  - FALL [None]
  - FEMUR FRACTURE [None]
